FAERS Safety Report 12718927 (Version 1)
Quarter: 2016Q3

REPORT INFORMATION
  Report Type: Other
  Country: US (occurrence: US)
  Receive Date: 20160906
  Receipt Date: 20160906
  Transmission Date: 20161109
  Serious: No
  Sender: FDA-Public Use
  Company Number: US-COL_20349_2015

PATIENT
  Sex: Female

DRUGS (1)
  1. COLGATE TOTAL CLEAN MINT [Suspect]
     Active Substance: SODIUM FLUORIDE\TRICLOSAN
     Indication: PRODUCT USED FOR UNKNOWN INDICATION
     Dosage: A TINY LITTLE BIT AMOUNT/ BID/
     Route: 048
     Dates: start: 201507, end: 20150725

REACTIONS (4)
  - Oral disorder [Recovering/Resolving]
  - Stomatitis [Recovering/Resolving]
  - Oral pain [Not Recovered/Not Resolved]
  - Oral discomfort [Recovering/Resolving]

NARRATIVE: CASE EVENT DATE: 2015
